FAERS Safety Report 6552752-2 (Version None)
Quarter: 2010Q1

REPORT INFORMATION
  Report Type: 
  Country: None (occurrence: None)
  Receive Date: 20100126
  Receipt Date: 20100121
  Transmission Date: 20100710
  Serious: Yes (Death)
  Sender: FDA-Public Use
  Company Number: PHHY2010MX03564

PATIENT
  Age: 63 Year
  Sex: Female

DRUGS (3)
  1. DIOVAN HCT [Suspect]
     Dosage: 1 TABLET (80/12.5 MG) PER DAY
     Route: 048
  2. HUMALOG [Concomitant]
     Indication: DIABETES MELLITUS
  3. MESTINON [Concomitant]
     Indication: MYASTHENIA GRAVIS

REACTIONS (1)
  - RENAL FAILURE [None]
